FAERS Safety Report 7363141-5 (Version None)
Quarter: 2011Q1

REPORT INFORMATION
  Report Type: 
  Country: None (occurrence: None)
  Receive Date: 20110321
  Receipt Date: 20110223
  Transmission Date: 20110831
  Serious: Yes (Hospitalization, Other)
  Sender: FDA-Public Use
  Company Number: US-BAYER-201034716NA

PATIENT
  Sex: Female
  Weight: 92.517 kg

DRUGS (2)
  1. YASMIN [Suspect]
     Indication: SLEEP DISORDER
     Dosage: UNK
     Dates: start: 20060201, end: 20060329
  2. YAZ [Suspect]
     Indication: SLEEP DISORDER
     Route: 048
     Dates: start: 20050101

REACTIONS (1)
  - PULMONARY EMBOLISM [None]
